FAERS Safety Report 5096911-7 (Version None)
Quarter: 2006Q3

REPORT INFORMATION
  Report Type: 
  Country: None (occurrence: None)
  Receive Date: 20060906
  Receipt Date: 20060804
  Transmission Date: 20061208
  Serious: Yes (Other)
  Sender: FDA-Public Use
  Company Number: CH-BRISTOL-MYERS SQUIBB COMPANY-13466073

PATIENT
  Age: 9 Year
  Sex: Male

DRUGS (3)
  1. COAPROVEL [Suspect]
     Indication: HYPERTENSION
     Route: 048
     Dates: start: 20000101
  2. COAPROVEL [Suspect]
     Indication: RENAL FAILURE
     Route: 048
     Dates: start: 20000101
  3. OLEOVIT A + D [Concomitant]

REACTIONS (2)
  - EOSINOPHILIC OESOPHAGITIS [None]
  - RASH [None]
